FAERS Safety Report 22352842 (Version 1)
Quarter: 2023Q2

REPORT INFORMATION
  Report Type: Report from Study
  Country: US (occurrence: US)
  Receive Date: 20230523
  Receipt Date: 20230523
  Transmission Date: 20230721
  Serious: No
  Sender: FDA-Public Use
  Company Number: US-ACADIA PHARMACEUTICALS INC.-ACA-2023-PIM-001658

PATIENT
  Sex: Male

DRUGS (12)
  1. NUPLAZID [Suspect]
     Active Substance: PIMAVANSERIN TARTRATE
     Indication: Parkinson^s disease
     Dosage: 34 MILLIGRAM, QD
     Route: 048
     Dates: start: 202211
  2. ELIQUIS [Concomitant]
     Active Substance: APIXABAN
  3. IRBESARTAN [Concomitant]
     Active Substance: IRBESARTAN
  4. RASAGILINE [Concomitant]
     Active Substance: RASAGILINE
  5. ATORVASTATIN [Concomitant]
     Active Substance: ATORVASTATIN
  6. GLIPIZIDE [Concomitant]
     Active Substance: GLIPIZIDE
  7. JARDIANCE [Concomitant]
     Active Substance: EMPAGLIFLOZIN
  8. NEBIVOLOL [Concomitant]
     Active Substance: NEBIVOLOL
  9. VITAMIN D3 [Concomitant]
     Active Substance: CHOLECALCIFEROL
  10. FISH OIL [Concomitant]
     Active Substance: FISH OIL
  11. COLACE [Concomitant]
     Active Substance: DOCUSATE SODIUM
  12. CARBIDOPA [Concomitant]
     Active Substance: CARBIDOPA

REACTIONS (2)
  - Hypoacusis [Unknown]
  - Blood pressure increased [Unknown]
